FAERS Safety Report 10328131 (Version 1)
Quarter: 2014Q3

REPORT INFORMATION
  Report Type: Spontaneous
  Country: CN (occurrence: CN)
  Receive Date: 20140721
  Receipt Date: 20140721
  Transmission Date: 20150326
  Serious: Yes (Hospitalization)
  Sender: FDA-Public Use
  Company Number: PHHY2014CN088047

PATIENT
  Age: 77 Year
  Sex: Male
  Weight: 67 kg

DRUGS (3)
  1. MEZLOCILLIN SODIUM [Concomitant]
     Active Substance: MEZLOCILLIN SODIUM
     Indication: LUNG INFECTION
     Dosage: 0.2 G, QD (IVGTT)
     Route: 042
     Dates: start: 20140106, end: 20140109
  2. LOTENSIN [Suspect]
     Active Substance: BENAZEPRIL HYDROCHLORIDE
     Indication: CARDIAC DISORDER
     Dosage: 10 MG, QD
     Route: 048
     Dates: start: 20140105, end: 20140108
  3. TEICOPLANIN [Concomitant]
     Active Substance: TEICOPLANIN
     Indication: LUNG INFECTION
     Dosage: 0.2 G, QD
     Route: 042
     Dates: start: 20131229, end: 20140109

REACTIONS (1)
  - Renal disorder [Not Recovered/Not Resolved]

NARRATIVE: CASE EVENT DATE: 20140107
